FAERS Safety Report 5395160-2 (Version None)
Quarter: 2007Q3

REPORT INFORMATION
  Report Type: 
  Country: None (occurrence: None)
  Receive Date: 20070713
  Receipt Date: 20061215
  Transmission Date: 20080115
  Serious: Yes (Hospitalization, Other)
  Sender: FDA-Public Use
  Company Number: US-JNJFOC-20061104141

PATIENT
  Age: 28 Year
  Sex: Female
  Weight: 105.2345 kg

DRUGS (5)
  1. ORTHO EVRA [Suspect]
     Indication: CONTRACEPTION
     Dosage: 1 DOSE(S), 1 IN 1 WEEK
  2. ALBUTEROL [Concomitant]
  3. DARVOCET [Concomitant]
  4. ADVAIR DISKUS 100/50 [Concomitant]
  5. ELAVIL [Concomitant]

REACTIONS (1)
  - PULMONARY EMBOLISM [None]
